FAERS Safety Report 7519466-3 (Version None)
Quarter: 2011Q2

REPORT INFORMATION
  Report Type: 
  Country: None (occurrence: None)
  Receive Date: 20110602
  Receipt Date: 20110527
  Transmission Date: 20111010
  Serious: Yes (Death, Hospitalization, Other)
  Sender: FDA-Public Use
  Company Number: DE-GENZYME-FLUD-1000305

PATIENT
  Age: 8 Year
  Sex: Male

DRUGS (9)
  1. CORTICOSTEROIDS [Concomitant]
     Indication: PRODUCT USED FOR UNKNOWN INDICATION
     Dosage: QID, PRIOR TO THE FIRST ARA-C INFUSION UNTIL 12 HRS AFTER THE LAST INFUSION
     Route: 047
  2. CYTARABINE [Suspect]
     Indication: ACUTE MYELOID LEUKAEMIA
     Dosage: 2000 MG/M2 OVER 3 HRS STARTING 4 HRS AFTER BEGINNING FLUDARABINE, QDX4 ON DAY 1 - DAY 4
     Route: 042
  3. FLUDARA [Suspect]
     Indication: ACUTE MYELOID LEUKAEMIA
     Dosage: 30 MG/M2 OVER 30 MINUTES, QDX4 ON DAY 1 - DAY 4
     Route: 042
  4. FLUCONAZOLE [Concomitant]
     Indication: ANTIFUNGAL PROPHYLAXIS
     Dosage: 3 MG/KG, QD
     Route: 065
  5. CHEMOTHERAPEUTICS NOS [Concomitant]
     Indication: ACUTE MYELOID LEUKAEMIA
     Dosage: UNK
     Route: 065
  6. GRANULOCYTE COLONY STIMULATING FACTOR [Suspect]
     Indication: ACUTE MYELOID LEUKAEMIA
     Dosage: 400 MCG/M2, QD STARTING ON DAY 0 UNTIL DAY ABSOLUTE NEUTROPHILL COUNT WAS GREATER THAN 1.0 X 10E9//L
     Route: 065
  7. ANTIEMETICS AND ANTINAUSEANTS [Concomitant]
     Indication: PRODUCT USED FOR UNKNOWN INDICATION
     Dosage: UNK
     Route: 065
  8. TRIMETHOPRIM + SULFAMETHOXAZOLE [Concomitant]
     Indication: ANTIBIOTIC PROPHYLAXIS
     Dosage: 5 MG/KG, QD
     Route: 065
  9. IDARUBICIN HCL [Suspect]
     Indication: ACUTE MYELOID LEUKAEMIA
     Dosage: 12 MG/M2 OVER 1 HR, STARTING 1 HR PRIOR TO ARA-C INFUSION QDX3 ON DAY 2 - DAY 4
     Route: 042

REACTIONS (4)
  - MUCOSAL INFLAMMATION [None]
  - BRONCHOPULMONARY ASPERGILLOSIS [None]
  - FEBRILE NEUTROPENIA [None]
  - SERRATIA INFECTION [None]
